FAERS Safety Report 21155575 (Version 1)
Quarter: 2022Q3

REPORT INFORMATION
  Report Type: Spontaneous
  Country: DE (occurrence: DE)
  Receive Date: 20220801
  Receipt Date: 20220801
  Transmission Date: 20221026
  Serious: Yes (Other)
  Sender: FDA-Public Use
  Company Number: None

PATIENT
  Age: 2 Year
  Sex: Male

DRUGS (2)
  1. AZACITIDINE [Suspect]
     Active Substance: AZACITIDINE
     Indication: Central nervous system melanoma
     Dosage: FOR 7 CONSECUTIVE DAYS IN 28-DAY?CYCLES
  2. TRAMETINIB [Suspect]
     Active Substance: TRAMETINIB
     Indication: Congenital melanocytic naevus
     Dosage: 0.035 MILLIGRAM/KILOGRAM, DAILY OS

REACTIONS (6)
  - Product use issue [Unknown]
  - Malignant neoplasm progression [Unknown]
  - Disease recurrence [Unknown]
  - Malignant melanoma [Unknown]
  - Blood creatine phosphokinase increased [Unknown]
  - Off label use [Unknown]
